FAERS Safety Report 5276400-7 (Version None)
Quarter: 2007Q1

REPORT INFORMATION
  Report Type: 
  Country: None (occurrence: None)
  Receive Date: 20061213
  Receipt Date: 20040113
  Transmission Date: 20070707
  Serious: Yes (Hospitalization)
  Sender: FDA-Public Use
  Company Number: 2004UW00600

PATIENT
  Age: 77 Year
  Sex: Female
  Weight: 58.9676 kg

DRUGS (5)
  1. SEROQUEL [Suspect]
     Indication: HALLUCINATION
     Dosage: 25 TO 50 MG A DAY
  2. SEROQUEL [Suspect]
     Indication: HALLUCINATION
     Dosage: 25 MG QD
  3. MIRAPEX [Concomitant]
  4. SINEMET [Concomitant]
  5. NORTRIPTYLINE HCL [Concomitant]

REACTIONS (1)
  - INTESTINAL OBSTRUCTION [None]
